FAERS Safety Report 17544639 (Version 6)
Quarter: 2020Q3

REPORT INFORMATION
  Report Type: Spontaneous
  Country: US (occurrence: US)
  Receive Date: 20200316
  Receipt Date: 20200706
  Transmission Date: 20201102
  Serious: Yes (Other)
  Sender: FDA-Public Use
  Company Number: US-PFIZER INC-2020107239

PATIENT
  Age: 85 Year
  Sex: Female
  Weight: 55 kg

DRUGS (4)
  1. LYRICA [Suspect]
     Active Substance: PREGABALIN
     Indication: NEURALGIA
  2. LYRICA [Suspect]
     Active Substance: PREGABALIN
     Indication: OSTEOPOROSIS
  3. LYRICA [Suspect]
     Active Substance: PREGABALIN
     Indication: FIBROMYALGIA
     Dosage: 75 MG, UNK
     Dates: start: 20200219
  4. LYRICA [Suspect]
     Active Substance: PREGABALIN
     Indication: ARTHRALGIA
     Dosage: 100 MG

REACTIONS (11)
  - Hallucination [Unknown]
  - Visual impairment [Unknown]
  - Cerebral disorder [Unknown]
  - Drug ineffective [Unknown]
  - Somnolence [Unknown]
  - Swelling face [Unknown]
  - Vision blurred [Unknown]
  - Drug intolerance [Unknown]
  - Balance disorder [Unknown]
  - Lip swelling [Unknown]
  - Swelling [Unknown]

NARRATIVE: CASE EVENT DATE: 2020
